FAERS Safety Report 4564959-4 (Version None)
Quarter: 2005Q1

REPORT INFORMATION
  Report Type: 
  Country: None (occurrence: None)
  Receive Date: 20050131
  Receipt Date: 20050121
  Transmission Date: 20050727
  Serious: Yes (Death)
  Sender: FDA-Public Use
  Company Number: US-JNJFOC-20040706240

PATIENT
  Sex: Male

DRUGS (4)
  1. DURAGESIC [Suspect]
     Route: 062
     Dates: end: 20040102
  2. DURAGESIC [Suspect]
     Route: 062
     Dates: end: 20040102
  3. DURAGESIC [Suspect]
     Route: 062
     Dates: end: 20040102
  4. DURAGESIC [Suspect]
     Route: 062
     Dates: end: 20040102

REACTIONS (1)
  - CARDIAC FAILURE CONGESTIVE [None]
